FAERS Safety Report 5888951-2 (Version None)
Quarter: 2008Q3

REPORT INFORMATION
  Report Type: 
  Country: None (occurrence: None)
  Receive Date: 20080918
  Receipt Date: 20080918
  Transmission Date: 20090109
  Serious: No
  Sender: FDA-Public Use
  Company Number: None

PATIENT
  Sex: Female
  Weight: 79 kg

DRUGS (1)
  1. TAXOL [Suspect]
     Dosage: 26 MG
     Dates: start: 20080912, end: 20080912

REACTIONS (5)
  - BACK PAIN [None]
  - DYSPNOEA [None]
  - HYPERHIDROSIS [None]
  - INFUSION RELATED REACTION [None]
  - OXYGEN SATURATION DECREASED [None]
